FAERS Safety Report 16239631 (Version 1)
Quarter: 2019Q2

REPORT INFORMATION
  Report Type: Spontaneous
  Country: US (occurrence: US)
  Receive Date: 20190425
  Receipt Date: 20190425
  Transmission Date: 20190711
  Serious: Yes (Hospitalization)
  Sender: FDA-Public Use
  Company Number: US-TEVA-2019-US-1041255

PATIENT
  Age: 69 Year
  Sex: Male

DRUGS (2)
  1. PREDNISONE. [Suspect]
     Active Substance: PREDNISONE
     Indication: ASTHMA
     Route: 065
  2. IBUPROFEN. [Suspect]
     Active Substance: IBUPROFEN
     Indication: BACK PAIN
     Dosage: 2-3 PILLS
     Route: 065

REACTIONS (3)
  - Gastrointestinal fistula [Recovering/Resolving]
  - Duodenal ulcer haemorrhage [Recovered/Resolved]
  - Peptic ulcer [Recovering/Resolving]
